FAERS Safety Report 8119416 (Version 2)
Quarter: 2013Q1

REPORT INFORMATION
  Report Type: Report from Study
  Country: UG (occurrence: UG)
  Receive Date: 20110902
  Receipt Date: 20130308
  Transmission Date: 20140127
  Serious: Yes (Death, Life-Threatening)
  Sender: FDA-Public Use
  Company Number: UG-ABBOTT-11P-165-0850330-00

PATIENT
  Age: 41 Year
  Sex: Male

DRUGS (1)
  1. ALUVIA TABLETS [Suspect]
     Indication: HIV INFECTION
     Route: 048
     Dates: start: 20110309, end: 20121215

REACTIONS (3)
  - Intestinal obstruction [Recovered/Resolved]
  - Accident [Fatal]
  - Abdominal pain [Fatal]
